FAERS Safety Report 24157878 (Version 2)
Quarter: 2024Q3

REPORT INFORMATION
  Report Type: Report from Study
  Country: DE (occurrence: DE)
  Receive Date: 20240731
  Receipt Date: 20240808
  Transmission Date: 20241016
  Serious: Yes (Death, Other)
  Sender: JOHNSON AND JOHNSON
  Company Number: DE-BAYER-2024A110003

PATIENT
  Age: 68 Year
  Sex: Male

DRUGS (2)
  1. VENTAVIS [Suspect]
     Active Substance: ILOPROST
     Indication: Pulmonary arterial hypertension
     Dosage: UNKNOWN
     Route: 055
     Dates: start: 20240703, end: 202407
  2. VENTAVIS [Suspect]
     Active Substance: ILOPROST
     Dosage: THERAPY END DATE: /AUG/2024
     Route: 055
     Dates: start: 202407

REACTIONS (3)
  - Respiratory failure [Fatal]
  - Oxygen saturation decreased [Recovered/Resolved]
  - Dyspnoea [Recovered/Resolved]

NARRATIVE: CASE EVENT DATE: 20240726
